FAERS Safety Report 21401275 (Version 1)
Quarter: 2022Q4

REPORT INFORMATION
  Report Type: Report from Study
  Country: MX (occurrence: MX)
  Receive Date: 20221003
  Receipt Date: 20221003
  Transmission Date: 20230112
  Serious: Yes (Death, Hospitalization, Other)
  Sender: FDA-Public Use
  Company Number: MX-NOVARTISPH-NVSC2022MX222233

PATIENT
  Age: 87 Year
  Sex: Female
  Weight: 55 kg

DRUGS (2)
  1. EXELON [Suspect]
     Active Substance: RIVASTIGMINE TARTRATE
     Indication: Dementia Alzheimer^s type
     Dosage: 1 DOSAGE FORM, QD, 9 MG (PATCH 5 (CM2) OR CONTAINS BASE LOADED WITH 9 MG RIVASTIGMINE / DAILY (DELIV
     Route: 062
  2. AKATINOL [Concomitant]
     Indication: Product used for unknown indication
     Dosage: UNK
     Route: 065

REACTIONS (2)
  - Renal failure [Fatal]
  - Parkinson^s disease [Fatal]
